FAERS Safety Report 11186551 (Version 1)
Quarter: 2015Q2

REPORT INFORMATION
  Report Type: Report from Study
  Country: JP (occurrence: JP)
  Receive Date: 20150613
  Receipt Date: 20150613
  Transmission Date: 20150821
  Serious: Yes (Other)
  Sender: FDA-Public Use
  Company Number: PHHY2013JP129848

PATIENT
  Age: 58 Year
  Sex: Male

DRUGS (54)
  1. CLOZARIL [Suspect]
     Active Substance: CLOZAPINE
     Dosage: 25 MG, QD
     Route: 048
     Dates: start: 20131017, end: 20131019
  2. CLOZARIL [Suspect]
     Active Substance: CLOZAPINE
     Dosage: 200 MG, QD
     Route: 048
     Dates: start: 20131210, end: 20140105
  3. CLOZARIL [Suspect]
     Active Substance: CLOZAPINE
     Dosage: 200 MG, QD
     Route: 048
     Dates: start: 20140109, end: 20140401
  4. CLOZARIL [Suspect]
     Active Substance: CLOZAPINE
     Dosage: 250 MG, QD
     Route: 048
     Dates: start: 20140402
  5. AKINETON [Concomitant]
     Active Substance: BIPERIDEN HYDROCHLORIDE
     Indication: PARKINSONISM
     Dosage: 4 MG, QD
     Route: 048
     Dates: end: 20131028
  6. PURSENNID [Concomitant]
     Active Substance: SENNOSIDES A AND B
     Indication: CONSTIPATION
     Dosage: 24 MG, QD
     Route: 048
  7. METLIGINE [Concomitant]
     Active Substance: MIDODRINE HYDROCHLORIDE
     Indication: ORTHOSTATIC HYPOTENSION
     Dosage: 8 MG, QD
     Route: 048
  8. LAXOBERON [Concomitant]
     Active Substance: SODIUM PICOSULFATE
     Dosage: 1 ML,
     Route: 048
     Dates: start: 20140212, end: 20140214
  9. LAXOBERON [Concomitant]
     Active Substance: SODIUM PICOSULFATE
     Dosage: 1 ML,
     Route: 048
     Dates: start: 20140225, end: 20140226
  10. LAXOBERON [Concomitant]
     Active Substance: SODIUM PICOSULFATE
     Dosage: 1 ML,
     Route: 048
     Dates: start: 20140228, end: 20140228
  11. GEBEN [Concomitant]
     Indication: PRODUCT USED FOR UNKNOWN INDICATION
     Dosage: UNK
     Route: 065
     Dates: start: 20131030, end: 20131030
  12. CLOZARIL [Suspect]
     Active Substance: CLOZAPINE
     Dosage: 100 MG, QD
     Route: 048
     Dates: start: 20140108, end: 20140108
  13. BENZALIN [Concomitant]
     Active Substance: NITRAZEPAM
     Indication: INSOMNIA
     Dosage: 10 MG, QD
     Route: 048
     Dates: start: 20131122, end: 20140223
  14. LAXOBERON [Concomitant]
     Active Substance: SODIUM PICOSULFATE
     Dosage: 1 ML,
     Route: 048
     Dates: start: 20140220, end: 20140220
  15. CLOZARIL [Suspect]
     Active Substance: CLOZAPINE
     Dosage: 100 MG, QD
     Route: 048
     Dates: start: 20131129, end: 20131130
  16. HIRNAMIN [Concomitant]
     Active Substance: PHENOTHIAZINE
     Indication: SCHIZOPHRENIA, DISORGANISED TYPE
     Dosage: 50 MG,
     Route: 048
     Dates: start: 20131030, end: 20131122
  17. SENNA [Concomitant]
     Active Substance: SENNA LEAF\SENNOSIDES\SENNOSIDES A AND B
     Indication: CONSTIPATION
     Dosage: 1000 MG, QD
     Route: 048
     Dates: end: 20140206
  18. AMOBAN [Concomitant]
     Active Substance: ZOPICLONE
     Indication: INSOMNIA
     Dosage: 10 MG, QD
     Route: 048
     Dates: start: 20131228, end: 20131228
  19. PL [Concomitant]
     Active Substance: ACETAMINOPHEN\CAFFEINE\PROMETHAZINE\SALICYLAMIDE
     Indication: NASOPHARYNGITIS
     Dosage: 3000 MG, QD
     Route: 048
     Dates: start: 20140212, end: 20140216
  20. LAXOBERON [Concomitant]
     Active Substance: SODIUM PICOSULFATE
     Dosage: 1 ML, QD
     Route: 048
     Dates: start: 20140204, end: 20140204
  21. CLOZARIL [Suspect]
     Active Substance: CLOZAPINE
     Dosage: 100 MG, QD
     Route: 048
     Dates: start: 20131025, end: 20131026
  22. CLOZARIL [Suspect]
     Active Substance: CLOZAPINE
     Dosage: 75 MG, QD
     Route: 048
     Dates: start: 20131127, end: 20131128
  23. HIRNAMIN [Concomitant]
     Active Substance: PHENOTHIAZINE
     Dosage: 25 MG,
     Route: 048
     Dates: start: 20131123, end: 20140206
  24. LIMAS [Concomitant]
     Active Substance: LITHIUM CARBONATE
     Indication: PROPHYLAXIS
     Dosage: 800 MG, QD
     Route: 048
     Dates: start: 20130812
  25. SENNA [Concomitant]
     Active Substance: SENNA LEAF\SENNOSIDES\SENNOSIDES A AND B
     Dosage: 2000 MG, QD
     Route: 048
     Dates: start: 20140207
  26. LAXOBERON [Concomitant]
     Active Substance: SODIUM PICOSULFATE
     Indication: CONSTIPATION
     Dosage: 3 ML, QD
     Route: 048
     Dates: start: 20140117, end: 20140117
  27. CLOZARIL [Suspect]
     Active Substance: CLOZAPINE
     Dosage: 125 MG, QD
     Route: 048
     Dates: start: 20131027, end: 20131027
  28. CLOZARIL [Suspect]
     Active Substance: CLOZAPINE
     Dosage: 75 MG, QD
     Route: 048
     Dates: start: 20131028, end: 20131028
  29. CLOZARIL [Suspect]
     Active Substance: CLOZAPINE
     Dosage: 100 MG, QD
     Route: 048
     Dates: start: 20140106, end: 20140106
  30. SEROQUEL [Concomitant]
     Active Substance: QUETIAPINE FUMARATE
     Indication: SCHIZOPHRENIA, DISORGANISED TYPE
     Dosage: 600 MG, QD
     Route: 048
     Dates: start: 20131016, end: 20131022
  31. LENDORMIN [Concomitant]
     Active Substance: BROTIZOLAM
     Indication: INSOMNIA
     Dosage: 0.25 MG, QD
     Route: 048
     Dates: end: 20131028
  32. LENDORMIN [Concomitant]
     Active Substance: BROTIZOLAM
     Dosage: 0.5 MG, QD
     Route: 048
     Dates: start: 20131029
  33. MAGNESIUM OXIDE. [Concomitant]
     Active Substance: MAGNESIUM OXIDE
     Indication: CONSTIPATION
     Dosage: 1000 MG, QD
     Route: 048
     Dates: end: 20140206
  34. LAXOBERON [Concomitant]
     Active Substance: SODIUM PICOSULFATE
     Dosage: 1 ML, QD
     Dates: start: 20140122, end: 20140122
  35. LAXOBERON [Concomitant]
     Active Substance: SODIUM PICOSULFATE
     Dosage: 1 ML, QD
     Route: 048
     Dates: start: 20140126, end: 20140126
  36. LAXOBERON [Concomitant]
     Active Substance: SODIUM PICOSULFATE
     Dosage: 1 ML,
     Route: 048
     Dates: start: 20140303, end: 20140304
  37. LAXOBERON [Concomitant]
     Active Substance: SODIUM PICOSULFATE
     Dosage: 1 ML,
     Route: 048
     Dates: start: 20140311, end: 20140311
  38. CLOZARIL [Suspect]
     Active Substance: CLOZAPINE
     Indication: SCHIZOPHRENIA, DISORGANISED TYPE
     Dosage: 12.5 MG, QD
     Route: 048
     Dates: start: 20131016, end: 20131016
  39. CLOZARIL [Suspect]
     Active Substance: CLOZAPINE
     Dosage: 50 MG, QD
     Route: 048
     Dates: start: 20131020, end: 20131022
  40. CLOZARIL [Suspect]
     Active Substance: CLOZAPINE
     Dosage: 12.5 MG, QD
     Route: 048
     Dates: start: 20131120, end: 20131120
  41. CLOZARIL [Suspect]
     Active Substance: CLOZAPINE
     Dosage: 150 MG, QD
     Route: 048
     Dates: start: 20131204, end: 20131206
  42. SEROQUEL [Concomitant]
     Active Substance: QUETIAPINE FUMARATE
     Dosage: 300 MG, QD
     Route: 048
     Dates: start: 20131023, end: 20131029
  43. BENZALIN [Concomitant]
     Active Substance: NITRAZEPAM
     Dosage: 15 MG, QD
     Route: 048
     Dates: start: 20140224
  44. LAXOBERON [Concomitant]
     Active Substance: SODIUM PICOSULFATE
     Dosage: 4 ML, QD
     Route: 048
     Dates: start: 20140118, end: 20140118
  45. LAXOBERON [Concomitant]
     Active Substance: SODIUM PICOSULFATE
     Dosage: 2 ML, QD
     Route: 048
     Dates: start: 20140123, end: 20140123
  46. CLOZARIL [Suspect]
     Active Substance: CLOZAPINE
     Dosage: 125 MG, QD
     Route: 048
     Dates: start: 20131201, end: 20131203
  47. SILECE [Concomitant]
     Active Substance: FLUNITRAZEPAM
     Indication: INSOMNIA
     Dosage: 2 MG, QD
     Route: 048
     Dates: end: 20131022
  48. MAGNESIUM OXIDE. [Concomitant]
     Active Substance: MAGNESIUM OXIDE
     Dosage: 2000 MG, QD
     Route: 048
     Dates: start: 20140207
  49. CODEINE PHOSPHATE HYDRATE [Concomitant]
     Active Substance: CODEINE PHOSPHATE
     Indication: NASOPHARYNGITIS
     Dosage: 60 MG, QD
     Route: 048
     Dates: start: 20140212, end: 20140216
  50. LAXOBERON [Concomitant]
     Active Substance: SODIUM PICOSULFATE
     Dosage: 1 ML,
     Route: 048
     Dates: start: 20140313, end: 20140313
  51. CLOZARIL [Suspect]
     Active Substance: CLOZAPINE
     Dosage: 75 MG, QD
     Route: 048
     Dates: start: 20131023, end: 20131024
  52. CLOZARIL [Suspect]
     Active Substance: CLOZAPINE
     Dosage: 25 MG, QD
     Route: 048
     Dates: start: 20131121, end: 20131123
  53. CLOZARIL [Suspect]
     Active Substance: CLOZAPINE
     Dosage: 50 MG, QD
     Route: 048
     Dates: start: 20131124, end: 20131126
  54. CLOZARIL [Suspect]
     Active Substance: CLOZAPINE
     Dosage: 175 MG, QD
     Route: 048
     Dates: start: 20131207, end: 20131209

REACTIONS (10)
  - Polydipsia [Not Recovered/Not Resolved]
  - Blood creatine phosphokinase decreased [Not Recovered/Not Resolved]
  - Weight increased [Not Recovered/Not Resolved]
  - Oedema peripheral [Recovered/Resolved]
  - Pyrexia [Recovered/Resolved]
  - Salivary hypersecretion [Recovering/Resolving]
  - Liver function test abnormal [Recovered/Resolved]
  - Blood creatine phosphokinase increased [Recovered/Resolved]
  - Pyrexia [Recovered/Resolved]
  - Weight increased [Recovered/Resolved]

NARRATIVE: CASE EVENT DATE: 20131025
